FAERS Safety Report 20582769 (Version 1)
Quarter: 2022Q1

REPORT INFORMATION
  Report Type: Report from Study
  Country: CA (occurrence: CA)
  Receive Date: 20220311
  Receipt Date: 20220311
  Transmission Date: 20220423
  Serious: Yes (Death, Other)
  Sender: FDA-Public Use
  Company Number: CA-GLAXOSMITHKLINE-CA2021253563

PATIENT
  Age: 83 Year
  Sex: Female

DRUGS (2)
  1. MEPOLIZUMAB [Suspect]
     Active Substance: MEPOLIZUMAB
     Indication: Asthma
     Dosage: 100 MG, Z EVERY 4 WEEK
     Route: 058
     Dates: start: 20200108
  2. MEPOLIZUMAB [Suspect]
     Active Substance: MEPOLIZUMAB
     Indication: Asthma
     Dosage: 100 MG, Z, EVERY 4 WEEKS
     Route: 058
     Dates: start: 20200108

REACTIONS (6)
  - Death [Fatal]
  - Oedema peripheral [Unknown]
  - Wheezing [Unknown]
  - Dyspnoea [Unknown]
  - Fatigue [Unknown]
  - Quarantine [Unknown]

NARRATIVE: CASE EVENT DATE: 20211206
